FAERS Safety Report 18229038 (Version 2)
Quarter: 2021Q1

REPORT INFORMATION
  Report Type: Spontaneous
  Country: CL (occurrence: CL)
  Receive Date: 20200903
  Receipt Date: 20210208
  Transmission Date: 20210419
  Serious: Yes (Death, Other)
  Sender: FDA-Public Use
  Company Number: CL-SYNEX-T202004384

PATIENT

DRUGS (5)
  1. CUROSURF [Suspect]
     Active Substance: PORACTANT ALFA
     Indication: RESPIRATORY FAILURE
     Dosage: UP TO 2 DOSES OF 100 MG/KG
     Route: 039
  2. FENTANYL. [Concomitant]
     Active Substance: FENTANYL
     Indication: SEDATION
     Dosage: UNK
     Route: 065
  3. MORPHINE [Concomitant]
     Active Substance: MORPHINE
     Indication: SEDATION
     Dosage: UNK
     Route: 065
  4. INOMAX [Suspect]
     Active Substance: NITRIC OXIDE
     Indication: RESPIRATORY FAILURE
     Dosage: 20 PPM (INHALATION)
     Route: 055
  5. INOMAX [Suspect]
     Active Substance: NITRIC OXIDE
     Dosage: STEPWISE REDUCTION BY 5 PPM EVERY 2?4 H UNTIL 5 PPM DOSE WAS REACHED (INHALATION)
     Route: 055

REACTIONS (8)
  - Pneumothorax [Unknown]
  - Respiratory failure [Fatal]
  - Endotracheal intubation complication [Unknown]
  - Neonatal hypoxia [Unknown]
  - Pulmonary haemorrhage [Unknown]
  - Intraventricular haemorrhage [Unknown]
  - Treatment failure [Unknown]
  - Hypotension [Unknown]
